FAERS Safety Report 20914008 (Version 1)
Quarter: 2022Q2

REPORT INFORMATION
  Report Type: Spontaneous
  Country: US (occurrence: US)
  Receive Date: 20220604
  Receipt Date: 20220604
  Transmission Date: 20220720
  Serious: No
  Sender: FDA-Public Use
  Company Number: US-BRISTOL-MYERS SQUIBB COMPANY-2022-048905

PATIENT
  Age: 65 Year
  Sex: Female

DRUGS (1)
  1. REVLIMID [Suspect]
     Active Substance: LENALIDOMIDE
     Indication: Myelodysplastic syndrome
     Dosage: DOSE: 10 MILLIGRAM, FREQ: TAKE 1 CAPSULE BY MOUTH DAILY FOR 21 DAYS, THEN HOLD FOR 7 DAYS
     Route: 048

REACTIONS (1)
  - Upper-airway cough syndrome [Unknown]
